FAERS Safety Report 22537257 (Version 2)
Quarter: 2023Q2

REPORT INFORMATION
  Report Type: Report from Study
  Country: US (occurrence: US)
  Receive Date: 20230608
  Receipt Date: 20230621
  Transmission Date: 20230721
  Serious: Yes (Other)
  Sender: FDA-Public Use
  Company Number: US-JAZZ PHARMACEUTICALS-2023-US-005348

PATIENT
  Age: 43 Year
  Sex: Female

DRUGS (3)
  1. XYWAV [Suspect]
     Active Substance: CALCIUM OXYBATE\MAGNESIUM OXYBATE\POTASSIUM OXYBATE\SODIUM OXYBATE
     Indication: Hypersomnia
     Dosage: 3.75 GRAM, BID
  2. XYWAV [Suspect]
     Active Substance: CALCIUM OXYBATE\MAGNESIUM OXYBATE\POTASSIUM OXYBATE\SODIUM OXYBATE
     Dosage: 4.5 GRAM, BID
  3. VITAMINS NOS [Concomitant]
     Active Substance: VITAMINS
     Indication: Product used for unknown indication
     Dosage: UNK
     Dates: start: 20230115

REACTIONS (9)
  - Carotid artery aneurysm [Unknown]
  - Road traffic accident [Unknown]
  - Narcolepsy [Unknown]
  - Cataplexy [Unknown]
  - Suicidal ideation [Unknown]
  - Depression [Unknown]
  - Anxiety [Unknown]
  - Arthralgia [Unknown]
  - Nausea [Unknown]

NARRATIVE: CASE EVENT DATE: 20230602
